FAERS Safety Report 10808486 (Version 1)
Quarter: 2015Q1

REPORT INFORMATION
  Report Type: Report from Study
  Country: US (occurrence: US)
  Receive Date: 20150217
  Receipt Date: 20150217
  Transmission Date: 20150721
  Serious: No
  Sender: FDA-Public Use
  Company Number: US-ABBVIE-14K-163-1261484-00

PATIENT
  Age: 34 Year
  Sex: Female

DRUGS (3)
  1. HUMIRA [Suspect]
     Active Substance: ADALIMUMAB
     Indication: CROHN^S DISEASE
     Dates: start: 20140530
  2. TRAMADOL [Concomitant]
     Active Substance: TRAMADOL
     Indication: ABDOMINAL PAIN
  3. ASACOL HD [Concomitant]
     Active Substance: MESALAMINE
     Indication: CROHN^S DISEASE

REACTIONS (5)
  - Injection site swelling [Not Recovered/Not Resolved]
  - Injection site erythema [Unknown]
  - Injection site pain [Not Recovered/Not Resolved]
  - Device issue [Unknown]
  - Injection site warmth [Unknown]

NARRATIVE: CASE EVENT DATE: 20140530
